FAERS Safety Report 9454566 (Version 1)
Quarter: 2013Q3

REPORT INFORMATION
  Report Type: Spontaneous
  Country: US (occurrence: None)
  Receive Date: 20130808
  Receipt Date: 20130808
  Transmission Date: 20140515
  Serious: Yes (Hospitalization, Other)
  Sender: FDA-Public Use
  Company Number: AUR-APL-2013-06269

PATIENT
  Age: 27 Year
  Sex: Female

DRUGS (10)
  1. CIPROFLOXACIN (CIPROFLOXACIN) [Suspect]
     Indication: PSEUDOMONAS INFECTION
  2. DIGOXIN (DIGOXIN) [Suspect]
     Indication: PRODUCT USED FOR UNKNOWN INDICATION
  3. ASPIRIN (ACETYLSALICYLIC ACID) [Concomitant]
  4. LOSARTAN (LOSARTAN) [Concomitant]
  5. NAPROXEN (NAPROXEN) [Concomitant]
  6. TOPIRAMATE (TOPIRAMATE) [Concomitant]
  7. LORATIDINE [Concomitant]
  8. METOPROLOL (METOPOLOL) [Concomitant]
  9. TRAZODONE (TRAZOSONE) [Concomitant]
  10. LANSOPRAZOLE (LANSOPRAOZOLE) [Concomitant]

REACTIONS (12)
  - Nausea [None]
  - Decreased appetite [None]
  - Toxicity to various agents [None]
  - Drug interaction [None]
  - Chest pain [None]
  - Fatigue [None]
  - Device malfunction [None]
  - Erythema [None]
  - Burning sensation [None]
  - Purulent discharge [None]
  - Fibrosis [None]
  - Wound infection pseudomonas [None]
